FAERS Safety Report 12423788 (Version 1)
Quarter: 2016Q2

REPORT INFORMATION
  Report Type: Spontaneous
  Country: US (occurrence: US)
  Receive Date: 20160601
  Receipt Date: 20160601
  Transmission Date: 20160815
  Serious: Yes (Other)
  Sender: FDA-Public Use
  Company Number: US-AMGEN-USASP2016066855

PATIENT
  Age: 79 Year
  Sex: Male

DRUGS (1)
  1. VECTIBIX [Suspect]
     Active Substance: PANITUMUMAB
     Indication: COLORECTAL CANCER METASTATIC
     Dosage: UNK UNK, ONE EVERY TWO WEEKS
     Route: 065
     Dates: start: 201604

REACTIONS (7)
  - Nail bed disorder [Unknown]
  - Rash [Unknown]
  - Malignant neoplasm progression [Unknown]
  - Heart rate increased [Unknown]
  - Dyspnoea [Unknown]
  - Blood pressure fluctuation [Unknown]
  - Dizziness [Unknown]

NARRATIVE: CASE EVENT DATE: 2016
